FAERS Safety Report 4705203-4 (Version None)
Quarter: 2005Q2

REPORT INFORMATION
  Report Type: 
  Country: None (occurrence: None)
  Receive Date: 20050628
  Receipt Date: 20050603
  Transmission Date: 20051028
  Serious: Yes (Death)
  Sender: FDA-Public Use
  Company Number: 11343

PATIENT
  Age: 44 Year
  Sex: Female

DRUGS (3)
  1. FLUOROURACIL [Suspect]
     Indication: COLON CANCER
     Dosage: 200 MG/M2 WEEKLY/1600 MG/M2 ONCE,IV
     Route: 042
  2. IRINOTECAN [Suspect]
     Indication: COLON CANCER
     Dosage: 80 MG/M2 WEEKLY/64 MG/M2 ONCE,IV
     Route: 042
  3. LEUCOVORIN [Suspect]
     Indication: PROPHYLAXIS
     Dosage: 500 MG/M2 WEEKLY,IV
     Route: 042

REACTIONS (13)
  - CHROMOSOMAL MUTATION [None]
  - DIARRHOEA [None]
  - DRUG TOXICITY [None]
  - FATIGUE [None]
  - GASTROINTESTINAL TOXICITY [None]
  - GENERAL PHYSICAL HEALTH DETERIORATION [None]
  - HAEMATOTOXICITY [None]
  - LEUKOPENIA [None]
  - MULTI-ORGAN FAILURE [None]
  - NAUSEA [None]
  - NEUTROPENIA [None]
  - SEPSIS [None]
  - VOMITING [None]
